FAERS Safety Report 10934541 (Version 2)
Quarter: 2015Q2

REPORT INFORMATION
  Report Type: Spontaneous
  Country: US (occurrence: US)
  Receive Date: 20150320
  Receipt Date: 20150603
  Transmission Date: 20150821
  Serious: Yes (Death, Hospitalization, Other)
  Sender: FDA-Public Use
  Company Number: US-PFIZER INC-2015096113

PATIENT
  Age: 55 Year
  Sex: Female
  Weight: 61 kg

DRUGS (6)
  1. FENTANYL. [Concomitant]
     Active Substance: FENTANYL
     Dosage: UNK
  2. GENOTROPIN MQ [Suspect]
     Active Substance: SOMATROPIN
     Indication: HYPOPITUITARISM
     Dosage: 0.2 MG, 7 DAYS A WEEK
     Route: 058
     Dates: start: 20141115
  3. METOPROLOL TARTRATE. [Concomitant]
     Active Substance: METOPROLOL TARTRATE
     Dosage: UNK
  4. HYDROCORTISONE. [Concomitant]
     Active Substance: HYDROCORTISONE
     Dosage: UNK
  5. GENOTROPIN MQ [Suspect]
     Active Substance: SOMATROPIN
     Indication: DWARFISM
     Dosage: 0.2 MG, 7 DAYS PER WEEK
     Route: 058
     Dates: start: 200903
  6. DDAVP [Concomitant]
     Active Substance: DESMOPRESSIN ACETATE
     Dosage: 0.01 %, UNK
     Route: 045

REACTIONS (7)
  - Adrenocortical insufficiency acute [Recovered/Resolved]
  - Blood sodium decreased [Unknown]
  - Cardiac disorder [Unknown]
  - Death [Fatal]
  - Cellulitis [Unknown]
  - Bronchitis [Unknown]
  - Rib fracture [Unknown]

NARRATIVE: CASE EVENT DATE: 201412
